FAERS Safety Report 20484801 (Version 1)
Quarter: 2022Q1

REPORT INFORMATION
  Report Type: Spontaneous
  Country: MX (occurrence: MX)
  Receive Date: 20220217
  Receipt Date: 20220217
  Transmission Date: 20220423
  Serious: Yes (Other)
  Sender: FDA-Public Use
  Company Number: MX-SLATE RUN PHARMACEUTICALS-22MX000906

PATIENT

DRUGS (5)
  1. AZITHROMYCIN [Suspect]
     Active Substance: AZITHROMYCIN
     Indication: Maternal exposure during pregnancy
     Dosage: UNK
     Route: 015
     Dates: start: 2020, end: 2020
  2. BETAMETHASONE [Concomitant]
     Active Substance: BETAMETHASONE
     Indication: Maternal exposure during pregnancy
     Dosage: UNK
     Route: 015
     Dates: start: 2020, end: 2020
  3. DEXAMETHASONE [Concomitant]
     Active Substance: DEXAMETHASONE
     Indication: Maternal exposure during pregnancy
     Dosage: UNK
     Route: 015
     Dates: start: 2020, end: 2020
  4. HYDROXYCHLOROQUINE [Concomitant]
     Active Substance: HYDROXYCHLOROQUINE
     Indication: Maternal exposure during pregnancy
     Dosage: UNK
     Route: 015
     Dates: start: 2020, end: 2020
  5. UNSPECIFIED INGREDIENT [Concomitant]
     Active Substance: UNSPECIFIED INGREDIENT
     Indication: Maternal exposure during pregnancy
     Dosage: UNK
     Route: 015
     Dates: start: 202007, end: 202007

REACTIONS (3)
  - Premature baby [Unknown]
  - SARS-CoV-2 test positive [Not Recovered/Not Resolved]
  - Foetal exposure during pregnancy [Recovered/Resolved]

NARRATIVE: CASE EVENT DATE: 20200101
